FAERS Safety Report 17266320 (Version 2)
Quarter: 2020Q1

REPORT INFORMATION
  Report Type: Spontaneous
  Country: US (occurrence: US)
  Receive Date: 20200114
  Receipt Date: 20200224
  Transmission Date: 20200409
  Serious: Yes (Hospitalization, Other)
  Sender: FDA-Public Use
  Company Number: US-PROCTER+GAMBLE-GS20001261

PATIENT
  Age: 57 Year
  Sex: Female
  Weight: 48.98 kg

DRUGS (8)
  1. LEVOTHYROXIN [Concomitant]
     Active Substance: LEVOTHYROXINE
     Indication: HYPOTHYROIDISM
     Dosage: 50 MILLIGRAM, 1 /DAY
  2. METAMUCIL THERAPY FOR REGULARITY [Suspect]
     Active Substance: PSYLLIUM HUSK
     Indication: SUPPLEMENTATION THERAPY
     Dosage: 1 DOSE
     Route: 048
     Dates: start: 20190808, end: 20191209
  3. METAMUCIL THERAPY FOR REGULARITY [Suspect]
     Active Substance: PSYLLIUM HUSK
     Dosage: 1 TB SPOON, 2 DAILY
     Route: 048
     Dates: start: 20190808, end: 20191209
  4. SINGULAIR [Concomitant]
     Active Substance: MONTELUKAST SODIUM
     Indication: HYPERSENSITIVITY
  5. SINGULAIR [Concomitant]
     Active Substance: MONTELUKAST SODIUM
     Indication: ASTHMA
     Dosage: UNK, 1 /DAY
  6. METAMUCIL THERAPY FOR REGULARITY [Suspect]
     Active Substance: PSYLLIUM HUSK
     Dosage: 3 DOSAGE FORM, DAILY
     Route: 048
     Dates: start: 20190808, end: 20191209
  7. KIRKLAND SIGNATURE ALLER FLO [Concomitant]
     Active Substance: FLUTICASONE PROPIONATE
  8. OMEPRAZOLE. [Concomitant]
     Active Substance: OMEPRAZOLE
     Indication: ANTACID THERAPY
     Dosage: 20 MILLIGRAM, 1 /DAY

REACTIONS (21)
  - Intestinal obstruction [Recovered/Resolved]
  - Colitis [Unknown]
  - Procedural haemorrhage [Recovered/Resolved]
  - Gastrointestinal necrosis [Unknown]
  - Intestinal mass [Unknown]
  - Gastrointestinal disorder [Recovered/Resolved]
  - Constipation [Recovering/Resolving]
  - White blood cell count increased [Unknown]
  - Product preparation issue [Unknown]
  - Faecaloma [Unknown]
  - Diverticulum [Unknown]
  - Diverticulitis [Unknown]
  - Purulence [Unknown]
  - Gastrointestinal infection [Recovered/Resolved]
  - Colonic abscess [Unknown]
  - Abdominal pain [Unknown]
  - Serositis [Unknown]
  - Large intestine perforation [Recovered/Resolved]
  - Computerised tomogram abdomen abnormal [Unknown]
  - Abdominal tenderness [Unknown]
  - Urethral haemorrhage [Unknown]

NARRATIVE: CASE EVENT DATE: 20191210
